FAERS Safety Report 5035548-2 (Version None)
Quarter: 2006Q2

REPORT INFORMATION
  Report Type: 
  Country: None (occurrence: None)
  Receive Date: 20060526
  Receipt Date: 20060413
  Transmission Date: 20061013
  Serious: No
  Sender: FDA-Public Use
  Company Number: 213442

PATIENT
  Age: 61 Year
  Sex: Male
  Weight: 78.5 kg

DRUGS (7)
  1. RAPTIVA [Suspect]
     Indication: PSORIASIS
  2. DOVONEX [Concomitant]
  3. ULTRAVATE (HALOBETASOL PROPIONATE) [Concomitant]
  4. ALLEGRA [Concomitant]
  5. NEXIUM [Concomitant]
  6. TOPROL-XL [Concomitant]
  7. ALTACE [Concomitant]

REACTIONS (1)
  - URTICARIA [None]
